FAERS Safety Report 5583147-6 (Version None)
Quarter: 2008Q1

REPORT INFORMATION
  Report Type: 
  Country: None (occurrence: None)
  Receive Date: 20080103
  Receipt Date: 20080103
  Transmission Date: 20080703
  Serious: Yes (Life-Threatening, Hospitalization)
  Sender: FDA-Public Use
  Company Number: None

PATIENT
  Sex: Male
  Weight: 58.9676 kg

DRUGS (2)
  1. ZOMETA [Suspect]
     Indication: CANCER IN REMISSION
     Dates: start: 20000101, end: 20071220
  2. ZOMETA [Suspect]
     Indication: PROSTATE CANCER
     Dates: start: 20000101, end: 20071220

REACTIONS (1)
  - RENAL FAILURE ACUTE [None]
